FAERS Safety Report 16165664 (Version 7)
Quarter: 2019Q3

REPORT INFORMATION
  Report Type: Report from Study
  Country: TW (occurrence: TW)
  Receive Date: 20190405
  Receipt Date: 20190725
  Transmission Date: 20191004
  Serious: Yes (Death, Hospitalization, Other)
  Sender: FDA-Public Use
  Company Number: PHHY2018TW166470

PATIENT
  Age: 79 Year
  Sex: Male
  Weight: 57 kg

DRUGS (34)
  1. SILODOSIN. [Concomitant]
     Active Substance: SILODOSIN
     Dosage: 4 OT, UNK
     Route: 042
     Dates: start: 20181010, end: 20181107
  2. BENZONATATE. [Concomitant]
     Active Substance: BENZONATATE
     Indication: BRONCHIECTASIS
     Dosage: 100 OT, UNK
     Route: 048
     Dates: start: 20180914, end: 20181010
  3. BIO-CAL [Concomitant]
     Indication: BACK PAIN
     Dosage: 1 OT, UNK
     Route: 048
     Dates: start: 20180921
  4. VALSARTAN. [Concomitant]
     Active Substance: VALSARTAN
     Indication: ESSENTIAL HYPERTENSION
     Dosage: 160 OT, UNK
     Route: 048
     Dates: start: 20181001, end: 20181001
  5. VOTRIENT [Suspect]
     Active Substance: PAZOPANIB HYDROCHLORIDE
     Indication: RENAL CELL CARCINOMA
     Dosage: 800 MG, QD (AC)
     Route: 048
     Dates: start: 20180912, end: 20180917
  6. DESFLURANE. [Concomitant]
     Active Substance: DESFLURANE
     Indication: BACK PAIN
     Dosage: 240 OT, UNK
     Route: 055
     Dates: start: 20180919, end: 20180919
  7. BISACODYL. [Concomitant]
     Active Substance: BISACODYL
     Dosage: 5 OT, UNK
     Route: 048
     Dates: start: 20180925, end: 20181003
  8. FENTANYL. [Concomitant]
     Active Substance: FENTANYL
     Indication: BACK PAIN
     Dosage: 2.1 OT, UNK
     Route: 062
     Dates: start: 20180912, end: 20180918
  9. ACETYLCYSTEINE. [Concomitant]
     Active Substance: ACETYLCYSTEINE
     Indication: BRONCHIECTASIS
     Dosage: 200 OT, UNK
     Route: 048
     Dates: start: 20180914, end: 20181010
  10. ERYTHROMYCIN. [Concomitant]
     Active Substance: ERYTHROMYCIN
     Indication: BRONCHIECTASIS
     Dosage: 250 OT, UNK
     Route: 048
     Dates: start: 20180914, end: 20180917
  11. AMLODIPINE BESYLATE. [Concomitant]
     Active Substance: AMLODIPINE BESYLATE
     Indication: ESSENTIAL HYPERTENSION
     Dosage: 5 OT, UNK
     Route: 048
     Dates: start: 20180917
  12. NEOSTIGMINE. [Concomitant]
     Active Substance: NEOSTIGMINE METHYLSULFATE
     Indication: BACK PAIN
     Dosage: 2 OT, UNK
     Route: 042
     Dates: start: 20180919, end: 20180919
  13. ESOMEPRAZOLE. [Concomitant]
     Active Substance: ESOMEPRAZOLE MAGNESIUM
     Indication: GASTROOESOPHAGEAL REFLUX DISEASE
     Dosage: 40 OT, UNK
     Route: 048
     Dates: start: 20180928
  14. VOTRIENT [Suspect]
     Active Substance: PAZOPANIB HYDROCHLORIDE
     Dosage: 800 MG, UNK
     Route: 048
     Dates: start: 20180924, end: 20181117
  15. FUROSEMIDE. [Concomitant]
     Active Substance: FUROSEMIDE
     Indication: HYPERTENSION
     Dosage: 40 OT, UNK
     Route: 048
     Dates: start: 20180922
  16. CALCIUM POLYSTYRENE SULFONATE [Concomitant]
     Active Substance: CALCIUM POLYSTYRENE SULFONATE
     Indication: ESSENTIAL HYPERTENSION
     Dosage: 5 DF, UNK
     Route: 048
     Dates: start: 20180920, end: 20181004
  17. SENNOSIDE [Concomitant]
     Active Substance: SENNOSIDES
     Indication: CONSTIPATION
     Dosage: 20 OT, UNK
     Route: 048
     Dates: start: 20180915
  18. ATROPINE. [Concomitant]
     Active Substance: ATROPINE
     Indication: BACK PAIN
     Dosage: 1 OT, UNK
     Route: 042
     Dates: start: 20180919, end: 20180920
  19. HEPARIN [Concomitant]
     Active Substance: HEPARIN SODIUM
     Indication: POSTOPERATIVE CARE
     Dosage: 5 OT, UNK
     Route: 042
     Dates: start: 20180919, end: 20180919
  20. MAGNESIUM OXIDE. [Concomitant]
     Active Substance: MAGNESIUM OXIDE
     Indication: GASTROOESOPHAGEAL REFLUX DISEASE
     Dosage: 250 OT, UNK
     Route: 048
     Dates: start: 20180904, end: 20181008
  21. DOXAZOSIN [Concomitant]
     Active Substance: DOXAZOSIN MESYLATE
     Indication: HYPERTENSION
     Dosage: UNK
     Route: 048
     Dates: start: 20181107
  22. SILODOSIN. [Concomitant]
     Active Substance: SILODOSIN
     Indication: BENIGN PROSTATIC HYPERPLASIA
     Dosage: 4 OT, UNK
     Route: 048
     Dates: start: 20180829, end: 20181107
  23. MORPHINE HCL [Concomitant]
     Active Substance: MORPHINE HYDROCHLORIDE
     Indication: MUSCULAR WEAKNESS
  24. FUROSEMIDE. [Concomitant]
     Active Substance: FUROSEMIDE
     Indication: ESSENTIAL HYPERTENSION
     Dosage: 20 OT, UNK
     Route: 042
     Dates: start: 20180920, end: 20180920
  25. BISACODYL. [Concomitant]
     Active Substance: BISACODYL
     Indication: CONSTIPATION
     Dosage: 10 OT, UNK
     Route: 065
     Dates: start: 20180924
  26. BETHANECHOL [Concomitant]
     Active Substance: BETHANECHOL
     Indication: POSTOPERATIVE CARE
     Dosage: 25 OT, UNK
     Route: 048
     Dates: start: 20180927, end: 20181011
  27. LACIDIPINE [Concomitant]
     Active Substance: LACIDIPINE
     Indication: HYPERTENSION
     Dosage: 4 OT, UNK
     Route: 048
     Dates: start: 20181108
  28. FENTANYL. [Concomitant]
     Active Substance: FENTANYL
     Indication: MUSCULAR WEAKNESS
     Dosage: 0.1 OT, UNK
     Route: 042
     Dates: start: 20180919, end: 20180919
  29. MORPHINE HCL [Concomitant]
     Active Substance: MORPHINE HYDROCHLORIDE
     Indication: BACK PAIN
     Dosage: 10 OT, UNK
     Route: 042
     Dates: start: 20180914, end: 20180914
  30. SEVOFLURANE. [Concomitant]
     Active Substance: SEVOFLURANE
     Indication: BACK PAIN
     Dosage: 250 OT, UNK
     Route: 055
     Dates: start: 20180919, end: 20180919
  31. EPHEDRINE HCL [Concomitant]
     Active Substance: EPHEDRINE HYDROCHLORIDE
     Indication: BACK PAIN
     Dosage: 40 OT, UNK
     Route: 042
     Dates: start: 20180919, end: 20180919
  32. PROPOFOL. [Concomitant]
     Active Substance: PROPOFOL
     Indication: BACK PAIN
     Dosage: 200 OT, UNK
     Route: 042
     Dates: start: 20180919, end: 20180919
  33. FUROSEMIDE. [Concomitant]
     Active Substance: FUROSEMIDE
     Dosage: 40 OT, UNK
     Route: 048
     Dates: start: 20181108, end: 20181129
  34. TRANEXAMIC ACID. [Concomitant]
     Active Substance: TRANEXAMIC ACID
     Indication: BACK PAIN
     Dosage: 250 OT, UNK
     Route: 048
     Dates: start: 20181002, end: 20181016

REACTIONS (11)
  - Hypokalaemia [Recovered/Resolved]
  - Pneumonia [Fatal]
  - Hyperkalaemia [Recovered/Resolved]
  - Blood creatinine increased [Not Recovered/Not Resolved]
  - Productive cough [Not Recovered/Not Resolved]
  - Urinary tract infection [Recovered/Resolved]
  - Haemoptysis [Not Recovered/Not Resolved]
  - Anaemia [Not Recovered/Not Resolved]
  - Hypoalbuminaemia [Fatal]
  - Urinary incontinence [Not Recovered/Not Resolved]
  - Urinary tract infection [Recovered/Resolved]

NARRATIVE: CASE EVENT DATE: 20180914
